FAERS Safety Report 15385549 (Version 1)
Quarter: 2018Q3

REPORT INFORMATION
  Report Type: Spontaneous
  Country: US (occurrence: US)
  Receive Date: 20180907
  Receipt Date: 20180907
  Transmission Date: 20181010
  Serious: Yes (Other)
  Sender: FDA-Public Use
  Company Number: None

PATIENT
  Age: 38 Year
  Sex: Female
  Weight: .45 kg

DRUGS (1)
  1. LAMOTRIGENE [Suspect]
     Active Substance: LAMOTRIGINE
     Indication: SEIZURE
     Route: 048

REACTIONS (2)
  - Product substitution issue [None]
  - Seizure [None]

NARRATIVE: CASE EVENT DATE: 20180907
